FAERS Safety Report 16476659 (Version 1)
Quarter: 2019Q2

REPORT INFORMATION
  Report Type: Spontaneous
  Country: CA (occurrence: CA)
  Receive Date: 20190626
  Receipt Date: 20190626
  Transmission Date: 20190711
  Serious: Yes (Life-Threatening, Hospitalization)
  Sender: FDA-Public Use
  Company Number: CA-ORION CORPORATION ORION PHARMA-TREX2014-0261

PATIENT
  Sex: Male

DRUGS (7)
  1. ALENDRONATE [Concomitant]
     Active Substance: ALENDRONATE SODIUM
     Route: 065
  2. FOLIC ACID. [Concomitant]
     Active Substance: FOLIC ACID
     Route: 065
  3. APO-CAL [Concomitant]
     Active Substance: CALCIUM CARBONATE
     Route: 065
  4. PRO-HYDROXYQUINE-200 [Suspect]
     Active Substance: HYDROXYCHLOROQUINE SULFATE
     Indication: PRODUCT USED FOR UNKNOWN INDICATION
     Dosage: STRENGTH: 200
     Route: 048
  5. VITAMIN D [Concomitant]
     Active Substance: VITAMIN D NOS
     Route: 065
  6. PANTOPRAZOLE [Concomitant]
     Active Substance: PANTOPRAZOLE
     Route: 065
  7. METHOTREXATE. [Suspect]
     Active Substance: METHOTREXATE
     Indication: PRODUCT USED FOR UNKNOWN INDICATION
     Dosage: STRENGTH: 2.5 MG
     Route: 048

REACTIONS (7)
  - Sepsis [Recovered/Resolved]
  - Product complaint [Recovered/Resolved]
  - Pain [Recovered/Resolved]
  - Tongue coated [Recovered/Resolved]
  - Pancytopenia [Recovered/Resolved]
  - Platelet transfusion [Recovered/Resolved]
  - Jaundice [Recovered/Resolved]
